FAERS Safety Report 7332942-1 (Version None)
Quarter: 2011Q1

REPORT INFORMATION
  Report Type: 
  Country: None (occurrence: None)
  Receive Date: 20110304
  Receipt Date: 20110304
  Transmission Date: 20110831
  Serious: Yes (Other)
  Sender: FDA-Public Use
  Company Number: US-PFIZER INC-2010138782

PATIENT
  Sex: Male

DRUGS (5)
  1. CHANTIX [Suspect]
     Dosage: UNK
     Dates: start: 20080601, end: 20090101
  2. VICODIN [Concomitant]
     Indication: PAIN
     Dosage: UNK
     Dates: start: 20030101, end: 20090101
  3. CHANTIX [Suspect]
     Indication: SMOKING CESSATION THERAPY
     Dosage: UNK
     Dates: start: 20080101
  4. NAPROXEN [Concomitant]
     Indication: INFLAMMATION
     Dosage: UNK
     Dates: start: 20070701, end: 20090401
  5. APAP TAB [Concomitant]
     Indication: PAIN
     Dosage: UNK
     Dates: start: 20070701, end: 20091101

REACTIONS (5)
  - CARBON MONOXIDE POISONING [None]
  - AGGRESSION [None]
  - SUICIDE ATTEMPT [None]
  - DEPRESSION [None]
  - ANXIETY [None]
